FAERS Safety Report 10734752 (Version 3)
Quarter: 2015Q1

REPORT INFORMATION
  Report Type: Spontaneous
  Country: US (occurrence: US)
  Receive Date: 20150123
  Receipt Date: 20150225
  Transmission Date: 20150721
  Serious: Yes (Hospitalization)
  Sender: FDA-Public Use
  Company Number: US-B.I. PHARMACEUTICALS,INC./RIDGEFIELD-2015-BI-03044BP

PATIENT
  Sex: Female

DRUGS (3)
  1. COMBIVENT [Suspect]
     Active Substance: ALBUTEROL SULFATE\IPRATROPIUM BROMIDE
     Indication: CHRONIC OBSTRUCTIVE PULMONARY DISEASE
     Dosage: DOSE PER APPLICATION:20 MCG / 100 MCG
     Route: 055
     Dates: start: 2014, end: 20141226
  2. COMBIVENT [Suspect]
     Active Substance: ALBUTEROL SULFATE\IPRATROPIUM BROMIDE
     Dosage: DOSE PER APPLICATION:20 MCG / 100 MCG
     Route: 055
     Dates: start: 20141230
  3. COMBIVENT [Suspect]
     Active Substance: ALBUTEROL SULFATE\IPRATROPIUM BROMIDE
     Dosage: DOSE PER APPLICATION: 18MCG/ 103MCG
     Route: 055

REACTIONS (9)
  - Cough [Unknown]
  - Sinusitis [Unknown]
  - Gastroenteritis viral [Unknown]
  - Renal failure [Unknown]
  - Product quality issue [Unknown]
  - Product quality issue [Unknown]
  - Dehydration [Unknown]
  - Cardiac disorder [Unknown]
  - Respiratory tract infection [Recovered/Resolved]

NARRATIVE: CASE EVENT DATE: 201412
